FAERS Safety Report 7049061-4 (Version None)
Quarter: 2010Q4

REPORT INFORMATION
  Report Type: 
  Country: None (occurrence: None)
  Receive Date: 20101018
  Receipt Date: 20101011
  Transmission Date: 20110411
  Serious: Yes (Other)
  Sender: FDA-Public Use
  Company Number: SE-TYCO HEALTHCARE/MALLINCKRODT-T201001948

PATIENT
  Sex: Female

DRUGS (3)
  1. TECHNESCAN DTPA KIT [Suspect]
     Indication: RADIOISOTOPE SCAN
     Dosage: UNK, SINGLE
     Route: 042
     Dates: start: 20100819, end: 20100819
  2. ULTRA-TECHNEKOW FM [Suspect]
     Indication: RADIOISOTOPE SCAN
     Dosage: 46.3 MBQ, SINGLE
     Route: 042
     Dates: start: 20100819, end: 20100819
  3. FURIX NYCOMED [Suspect]
     Indication: RADIOISOTOPE SCAN
     Dosage: 26.6 MG, SINGLE
     Route: 042
     Dates: start: 20100819, end: 20100819

REACTIONS (4)
  - PYREXIA [None]
  - RASH [None]
  - URTICARIA [None]
  - VOMITING [None]
